FAERS Safety Report 23618711 (Version 1)
Quarter: 2024Q1

REPORT INFORMATION
  Report Type: Spontaneous
  Country: FR (occurrence: FR)
  Receive Date: 20240311
  Receipt Date: 20240311
  Transmission Date: 20240409
  Serious: Yes (Death, Other)
  Sender: FDA-Public Use
  Company Number: FR-BRISTOL-MYERS SQUIBB COMPANY-2024-037411

PATIENT
  Age: 89 Year
  Sex: Male
  Weight: 87 kg

DRUGS (5)
  1. ELIQUIS [Suspect]
     Active Substance: APIXABAN
     Indication: Atrial fibrillation
     Dosage: 5 MG/DAY (IN 2 DOSES)
     Route: 048
     Dates: start: 20240209, end: 20240222
  2. ALDACTONE [Suspect]
     Active Substance: SPIRONOLACTONE
     Dosage: 12.5 MG, 1X/DAY
     Route: 048
     Dates: start: 20240214, end: 20240216
  3. HYDROCHLOROTHIAZIDE [Suspect]
     Active Substance: HYDROCHLOROTHIAZIDE
     Indication: Oedema due to cardiac disease
     Dosage: 25 MG, 1X/DAY
     Route: 048
     Dates: start: 20240214, end: 20240222
  4. DAPAGLIFLOZIN [Suspect]
     Active Substance: DAPAGLIFLOZIN
     Indication: Cardiac failure
     Dosage: 10 MG, 1X/DAY
     Route: 048
     Dates: start: 20240212, end: 20240223
  5. PRISTINAMYCIN [Suspect]
     Active Substance: PRISTINAMYCIN
     Indication: Erysipelas
     Dosage: 3 G/D (IN 3 DOSES)
     Route: 048
     Dates: start: 20240215, end: 20240220

REACTIONS (1)
  - Death [Fatal]

NARRATIVE: CASE EVENT DATE: 20240225
